FAERS Safety Report 18679436 (Version 1)
Quarter: 2020Q4

REPORT INFORMATION
  Report Type: Spontaneous
  Country: FR (occurrence: FR)
  Receive Date: 20201230
  Receipt Date: 20201230
  Transmission Date: 20210114
  Serious: Yes (Congenital Anomaly)
  Sender: FDA-Public Use
  Company Number: FR-SA-2020SA371200

PATIENT

DRUGS (2)
  1. CLONIDINE. [Suspect]
     Active Substance: CLONIDINE
     Dosage: 1 DF, QD
     Route: 064
     Dates: start: 20180110
  2. LOVENOX [Suspect]
     Active Substance: ENOXAPARIN SODIUM
     Dosage: 0.4 ML, QD
     Route: 064
     Dates: start: 20180110, end: 20180410

REACTIONS (2)
  - Foetal exposure during pregnancy [Recovering/Resolving]
  - Congenital renal cyst [Recovering/Resolving]

NARRATIVE: CASE EVENT DATE: 20180110
